FAERS Safety Report 13372936 (Version 1)
Quarter: 2017Q1

REPORT INFORMATION
  Report Type: Report from Study
  Country: US (occurrence: US)
  Receive Date: 20170327
  Receipt Date: 20170327
  Transmission Date: 20170429
  Serious: Yes (Other)
  Sender: FDA-Public Use
  Company Number: US-JNJFOC-20170325629

PATIENT
  Sex: Male
  Weight: 64 kg

DRUGS (2)
  1. TRAMADOL. [Concomitant]
     Active Substance: TRAMADOL
  2. IMBRUVICA [Suspect]
     Active Substance: IBRUTINIB
     Indication: MANTLE CELL LYMPHOMA
     Route: 065
     Dates: start: 2017

REACTIONS (10)
  - Dysphonia [Unknown]
  - Diarrhoea [Unknown]
  - Asthenia [Unknown]
  - Petechiae [Unknown]
  - Haemoglobin decreased [Recovered/Resolved]
  - Purpura [Unknown]
  - Stomatitis [Recovered/Resolved]
  - Splenomegaly [Unknown]
  - Fatigue [Recovering/Resolving]
  - Oedema [Recovered/Resolved]
